FAERS Safety Report 13906308 (Version 1)
Quarter: 2017Q3

REPORT INFORMATION
  Report Type: Spontaneous
  Country: US (occurrence: US)
  Receive Date: 20170825
  Receipt Date: 20170825
  Transmission Date: 20171127
  Serious: Yes (Other)
  Sender: FDA-Public Use
  Company Number: US-BAUSCH-BL-2017-024483

PATIENT
  Age: 49 Year
  Sex: Female
  Weight: 70.37 kg

DRUGS (1)
  1. SOOTHE NIGHT TIME [Suspect]
     Active Substance: MINERAL OIL\PETROLATUM
     Indication: DRY EYE
     Dosage: APPLIED TO EACH EYE
     Route: 061
     Dates: start: 20170814, end: 20170815

REACTIONS (2)
  - Punctate keratitis [Not Recovered/Not Resolved]
  - Eye pain [Not Recovered/Not Resolved]

NARRATIVE: CASE EVENT DATE: 20170815
